FAERS Safety Report 6491183-0 (Version None)
Quarter: 2009Q4

REPORT INFORMATION
  Report Type: 
  Country: None (occurrence: None)
  Receive Date: 20091207
  Receipt Date: 20091201
  Transmission Date: 20100525
  Serious: Yes (Hospitalization, Other)
  Sender: FDA-Public Use
  Company Number: 2009SP021568

PATIENT
  Age: 1 Day
  Sex: Male
  Weight: 1.42 kg

DRUGS (18)
  1. PEG-INTRON [Suspect]
     Indication: PREGNANCY
     Dates: start: 20080910, end: 20090527
  2. RIBAVIRIN [Suspect]
     Indication: DRUG EXPOSURE DURING PREGNANCY
     Dates: start: 20080910, end: 20090601
  3. LOXOPROFEN (LOXOPROFEN) [Suspect]
     Indication: DRUG EXPOSURE DURING PREGNANCY
     Dates: start: 20080911, end: 20090220
  4. ETIZOLAM (ETIZOLAM) [Suspect]
     Indication: DRUG EXPOSURE DURING PREGNANCY
     Dates: start: 20080916, end: 20080916
  5. ETIZOLAM (ETIZOLAM) [Suspect]
     Indication: DRUG EXPOSURE DURING PREGNANCY
     Dates: start: 20080919, end: 20080920
  6. ETIZOLAM (ETIZOLAM) [Suspect]
     Indication: DRUG EXPOSURE DURING PREGNANCY
     Dates: start: 20080921, end: 20081029
  7. ETIZOLAM (ETIZOLAM) [Suspect]
     Indication: DRUG EXPOSURE DURING PREGNANCY
     Dates: start: 20081105, end: 20090531
  8. DOMPERIDONE (DOMPERIDONE) [Suspect]
     Indication: DRUG EXPOSURE DURING PREGNANCY
     Dates: start: 20081029, end: 20090110
  9. HIRUDOID SOFT (HEPARINOID) (HEPARINOID) [Suspect]
     Indication: DRUG EXPOSURE DURING PREGNANCY
     Dates: start: 20081105, end: 20081224
  10. RESTAMIN (DIPHENHYDRAMINE) [Suspect]
     Indication: DRUG EXPOSURE DURING PREGNANCY
     Dates: start: 20080913, end: 20080915
  11. RESTAMIN (DIPHENHYDRAMINE) [Suspect]
     Indication: DRUG EXPOSURE DURING PREGNANCY
     Dates: start: 20081015, end: 20090511
  12. RESTAMIN ( DI PHENHYDRAMINE ) [Suspect]
     Indication: DRUG EXPOSURE DURING PREGNANCY
     Dates: start: 20080913, end: 20080916
  13. LANSOPRAZOLE [Suspect]
     Indication: PREGNANCY
     Dates: start: 20081001, end: 20090617
  14. LANSOPRAZOLE [Suspect]
     Indication: PREGNANCY
     Dates: start: 20080919, end: 20090925
  15. TOWATHIEM (NON-PYRINE COLD PREPARATION (SALICYLAMIDE, ACETAMINOPHEN, A [Concomitant]
  16. MUCOSAL [Concomitant]
  17. NEODAY [Concomitant]
  18. EBASTINE [Concomitant]

REACTIONS (4)
  - CAESAREAN SECTION [None]
  - PATERNAL DRUGS AFFECTING FOETUS [None]
  - SMALL FOR DATES BABY [None]
  - TWIN PREGNANCY [None]
